FAERS Safety Report 16530578 (Version 1)
Quarter: 2019Q3

REPORT INFORMATION
  Report Type: Spontaneous
  Country: US (occurrence: US)
  Receive Date: 20190704
  Receipt Date: 20190704
  Transmission Date: 20191004
  Serious: No
  Sender: FDA-Public Use
  Company Number: US-ELI_LILLY_AND_COMPANY-US201906010238

PATIENT
  Sex: Male

DRUGS (2)
  1. BONIVA [Concomitant]
     Active Substance: IBANDRONATE SODIUM
     Indication: PRODUCT USED FOR UNKNOWN INDICATION
  2. FORTEO [Suspect]
     Active Substance: TERIPARATIDE
     Indication: BONE DISORDER
     Dosage: UNK UNK, UNKNOWN
     Route: 065
     Dates: start: 20190624

REACTIONS (2)
  - Accidental overdose [Unknown]
  - Osteopenia [Unknown]

NARRATIVE: CASE EVENT DATE: 20190624
